FAERS Safety Report 18493566 (Version 8)
Quarter: 2021Q2

REPORT INFORMATION
  Report Type: Report from Study
  Country: CN (occurrence: CN)
  Receive Date: 20201112
  Receipt Date: 20210407
  Transmission Date: 20210717
  Serious: Yes (Hospitalization)
  Sender: FDA-Public Use
  Company Number: CN-TAKEDA-2020TUS048806

PATIENT
  Age: 49 Year
  Sex: Male
  Weight: 68 kg

DRUGS (9)
  1. FENOFIBRATE. [Concomitant]
     Active Substance: FENOFIBRATE
     Dosage: 200 MILLIGRAM, QD
     Route: 048
     Dates: start: 20201007, end: 20201007
  2. FENOFIBRATE. [Concomitant]
     Active Substance: FENOFIBRATE
     Dosage: 200 MILLIGRAM, QD
     Route: 048
     Dates: start: 20201010, end: 20201024
  3. DICLOFENAC SODIUM. [Concomitant]
     Active Substance: DICLOFENAC SODIUM
     Indication: GOUT
     Dosage: 100 MILLIGRAM, QD
     Route: 048
     Dates: start: 20201003, end: 20201003
  4. PONATINIB [Suspect]
     Active Substance: PONATINIB
     Indication: CHRONIC MYELOID LEUKAEMIA
     Dosage: 45 MILLIGRAM, QD
     Route: 048
     Dates: start: 20201001, end: 20201010
  5. IBUPROFEN. [Concomitant]
     Active Substance: IBUPROFEN
     Dosage: 5 MILLILITER, QD
     Route: 048
     Dates: start: 20201014, end: 20201014
  6. IBUPROFEN. [Concomitant]
     Active Substance: IBUPROFEN
     Indication: PYREXIA
     Dosage: 10 MILLILITER, QD
     Route: 048
     Dates: start: 20201006, end: 20201006
  7. PONATINIB [Suspect]
     Active Substance: PONATINIB
     Dosage: 30 MILLIGRAM, QD
     Route: 048
     Dates: start: 20201014, end: 20201024
  8. FENOFIBRATE. [Concomitant]
     Active Substance: FENOFIBRATE
     Indication: LIPIDS DECREASED
     Dosage: 200 MILLIGRAM, QD
     Route: 048
     Dates: start: 20201001, end: 20201005
  9. IBUPROFEN. [Concomitant]
     Active Substance: IBUPROFEN
     Dosage: 10 MILLILITER, QD
     Route: 048
     Dates: start: 20201008, end: 20201013

REACTIONS (1)
  - Drug eruption [Recovered/Resolved]

NARRATIVE: CASE EVENT DATE: 20201009
